FAERS Safety Report 23236454 (Version 7)
Quarter: 2024Q1

REPORT INFORMATION
  Report Type: Report from Study
  Country: KR (occurrence: KR)
  Receive Date: 20231128
  Receipt Date: 20240319
  Transmission Date: 20240410
  Serious: Yes (Hospitalization, Other)
  Sender: FDA-Public Use
  Company Number: KR-002147023-NVSC2023KR230921

PATIENT
  Sex: Female
  Weight: 61.3 kg

DRUGS (56)
  1. RYDAPT [Suspect]
     Active Substance: MIDOSTAURIN
     Indication: Acute myeloid leukaemia
     Dosage: 50 MG, BID
     Route: 048
     Dates: start: 20230908, end: 20230921
  2. RYDAPT [Suspect]
     Active Substance: MIDOSTAURIN
     Dosage: 50 MG, BID
     Route: 048
     Dates: start: 20231108, end: 20231121
  3. RYDAPT [Suspect]
     Active Substance: MIDOSTAURIN
     Dosage: 50 MG, BID
     Route: 048
     Dates: start: 20231211, end: 20231224
  4. DAUNORUBICIN HYDROCHLORIDE [Concomitant]
     Active Substance: DAUNORUBICIN HYDROCHLORIDE
     Indication: Acute myeloid leukaemia
     Dosage: 94 MG
     Route: 042
     Dates: start: 20230901, end: 20230903
  5. CYTARABINE [Concomitant]
     Active Substance: CYTARABINE
     Indication: Acute myeloid leukaemia
     Dosage: 158 MG (PFIZER)
     Route: 042
     Dates: start: 20230901, end: 20230907
  6. CYTARABINE [Concomitant]
     Active Substance: CYTARABINE
     Dosage: 4650 MG (EOD)
     Route: 042
     Dates: start: 20231028, end: 20231101
  7. CYTARABINE [Concomitant]
     Active Substance: CYTARABINE
     Dosage: 4650 MG
     Route: 042
     Dates: start: 20231206, end: 20231210
  8. CYTARABINE [Concomitant]
     Active Substance: CYTARABINE
     Dosage: 4650 MG (EOD)
     Route: 042
     Dates: start: 20231028, end: 20231028
  9. CYTARABINE [Concomitant]
     Active Substance: CYTARABINE
     Dosage: 4650 MG
     Route: 042
     Dates: start: 20231030, end: 20231030
  10. CYTARABINE [Concomitant]
     Active Substance: CYTARABINE
     Dosage: 4650 MG
     Route: 042
     Dates: start: 20231101, end: 20231101
  11. CYTARABINE [Concomitant]
     Active Substance: CYTARABINE
     Dosage: 4650 MG
     Route: 042
     Dates: start: 20231206, end: 20231206
  12. CYTARABINE [Concomitant]
     Active Substance: CYTARABINE
     Dosage: 4650 MG
     Route: 042
     Dates: start: 20231208, end: 20231208
  13. CYTARABINE [Concomitant]
     Active Substance: CYTARABINE
     Dosage: 4650 MG
     Route: 042
     Dates: start: 20231210, end: 20231210
  14. CYTARABINE [Concomitant]
     Active Substance: CYTARABINE
     Dosage: UNK
     Route: 065
  15. ACYCLOVIR [Concomitant]
     Active Substance: ACYCLOVIR
     Indication: Viral infection
     Dosage: 600 MG (KUKJE)
     Route: 048
     Dates: start: 20230901, end: 20230929
  16. DIABEX [Concomitant]
     Active Substance: METFORMIN HYDROCHLORIDE
     Indication: Diabetes mellitus
     Dosage: 1000 MG
     Route: 048
     Dates: start: 20230927
  17. LANSOPRAZOLE [Concomitant]
     Active Substance: LANSOPRAZOLE
     Indication: Gastritis prophylaxis
     Dosage: 30 MG (LFDT)
     Route: 048
     Dates: start: 20230828, end: 20230924
  18. LEXAPRO [Concomitant]
     Active Substance: ESCITALOPRAM OXALATE
     Indication: Depression
     Dosage: 10 MG
     Route: 048
     Dates: start: 20230830
  19. MAGNESIUM HYDROXIDE [Concomitant]
     Active Substance: MAGNESIUM HYDROXIDE
     Indication: Dyschezia
     Dosage: 2000 MG
     Route: 048
     Dates: start: 20230828, end: 20230924
  20. MAGNESIUM HYDROXIDE [Concomitant]
     Active Substance: MAGNESIUM HYDROXIDE
     Dosage: 2000 MG
     Route: 048
     Dates: start: 20231027, end: 20231215
  21. MAGNESIUM HYDROXIDE [Concomitant]
     Active Substance: MAGNESIUM HYDROXIDE
     Dosage: 2000 MG
     Route: 048
     Dates: start: 20231226
  22. MYPOL [Concomitant]
     Indication: Pain
     Dosage: 3 DOSAGE FORM
     Route: 048
     Dates: start: 20230914, end: 20230915
  23. MYPOL [Concomitant]
     Dosage: 3 DOSAGE FORM
     Route: 048
     Dates: start: 20231006, end: 20231007
  24. NOXAFIL [Concomitant]
     Active Substance: POSACONAZOLE
     Indication: Fungal infection
     Dosage: 300 MG
     Route: 048
     Dates: start: 20230901, end: 20230929
  25. LINAGLIPTIN [Concomitant]
     Active Substance: LINAGLIPTIN
     Indication: Diabetes mellitus
     Dosage: 5 MG
     Route: 048
     Dates: start: 20230828
  26. TRAZODONE HYDROCHLORIDE [Concomitant]
     Active Substance: TRAZODONE HYDROCHLORIDE
     Indication: Depression
     Dosage: 12.5 MG
     Route: 048
     Dates: start: 20230830
  27. ALLOPURINOL [Concomitant]
     Active Substance: ALLOPURINOL
     Indication: Tumour lysis syndrome
     Dosage: 300 MG
     Route: 048
     Dates: start: 20230830, end: 20230907
  28. ALOXI [Concomitant]
     Active Substance: PALONOSETRON HYDROCHLORIDE
     Indication: Nausea
     Dosage: 0.25 MG (EOD)
     Route: 042
     Dates: start: 20230901, end: 20231007
  29. ALOXI [Concomitant]
     Active Substance: PALONOSETRON HYDROCHLORIDE
     Indication: Acute myeloid leukaemia
     Dosage: 0.25 MG (EOD)
     Route: 042
     Dates: start: 20231028, end: 20231101
  30. ALOXI [Concomitant]
     Active Substance: PALONOSETRON HYDROCHLORIDE
     Dosage: 2.5 MG (EOD)
     Route: 042
     Dates: start: 20231206, end: 20231210
  31. ALOXI [Concomitant]
     Active Substance: PALONOSETRON HYDROCHLORIDE
     Dosage: 0.25 MG
     Route: 042
     Dates: start: 20230901, end: 20230901
  32. ALOXI [Concomitant]
     Active Substance: PALONOSETRON HYDROCHLORIDE
     Dosage: 0.25 MG
     Route: 042
     Dates: start: 20230903, end: 20230903
  33. ALOXI [Concomitant]
     Active Substance: PALONOSETRON HYDROCHLORIDE
     Dosage: 0.25 MG
     Route: 042
     Dates: start: 20230907, end: 20230907
  34. ALOXI [Concomitant]
     Active Substance: PALONOSETRON HYDROCHLORIDE
     Dosage: 0.25 MG
     Route: 042
     Dates: start: 20231028, end: 20231028
  35. ALOXI [Concomitant]
     Active Substance: PALONOSETRON HYDROCHLORIDE
     Dosage: 0.25 MG
     Route: 042
     Dates: start: 20231030, end: 20231030
  36. ALOXI [Concomitant]
     Active Substance: PALONOSETRON HYDROCHLORIDE
     Dosage: 0.25 MG
     Route: 042
     Dates: start: 20231101, end: 20231101
  37. ALOXI [Concomitant]
     Active Substance: PALONOSETRON HYDROCHLORIDE
     Dosage: 0.25 MG
     Route: 042
     Dates: start: 20231206, end: 20231206
  38. ALOXI [Concomitant]
     Active Substance: PALONOSETRON HYDROCHLORIDE
     Dosage: 0.25 MG
     Route: 042
     Dates: start: 20231208, end: 20231208
  39. ALOXI [Concomitant]
     Active Substance: PALONOSETRON HYDROCHLORIDE
     Dosage: 0.25 MG
     Route: 042
     Dates: start: 20231210, end: 20231210
  40. ALOXI [Concomitant]
     Active Substance: PALONOSETRON HYDROCHLORIDE
     Dosage: 2.5 MG
     Route: 042
     Dates: start: 20230905, end: 20230905
  41. FASTURTEC [Concomitant]
     Active Substance: RASBURICASE
     Indication: Hyperuricaemia
     Dosage: 1.5 MG
     Route: 042
     Dates: start: 20230901, end: 20230901
  42. METOCLOPRAMIDE HYDROCHLORIDE [Concomitant]
     Active Substance: METOCLOPRAMIDE HYDROCHLORIDE
     Indication: Nausea
     Dosage: 30 MG
     Route: 042
     Dates: start: 20230904, end: 20230908
  43. MAXIPIME [Concomitant]
     Active Substance: CEFEPIME HYDROCHLORIDE
     Indication: Pneumonia
     Dosage: 6 G
     Route: 042
     Dates: start: 20230901, end: 20230911
  44. MAXIPIME [Concomitant]
     Active Substance: CEFEPIME HYDROCHLORIDE
     Dosage: 6 G
     Route: 042
     Dates: start: 20230919, end: 20230924
  45. MAXIPIME [Concomitant]
     Active Substance: CEFEPIME HYDROCHLORIDE
     Dosage: 6 G
     Route: 042
     Dates: start: 20231227, end: 20231229
  46. PENIRAMIN [Concomitant]
     Indication: Premedication
     Dosage: 4 MG, PRN
     Route: 042
     Dates: start: 20230903, end: 20230924
  47. PENIRAMIN [Concomitant]
     Dosage: 4 MG
     Route: 042
     Dates: start: 20231108, end: 20231108
  48. PENIRAMIN [Concomitant]
     Dosage: 4 MG
     Route: 065
     Dates: start: 20231117, end: 20231117
  49. MEPERIDINE HYDROCHLORIDE [Concomitant]
     Active Substance: MEPERIDINE HYDROCHLORIDE
     Indication: Pain
     Dosage: 25 MG (GUJU)
     Route: 030
     Dates: start: 20230914, end: 20230914
  50. MEPERIDINE HYDROCHLORIDE [Concomitant]
     Active Substance: MEPERIDINE HYDROCHLORIDE
     Dosage: 25 MG
     Route: 030
     Dates: start: 20231006, end: 20231006
  51. DIFLUCAN [Concomitant]
     Active Substance: FLUCONAZOLE
     Indication: Fungal infection
     Dosage: 50 MG
     Route: 065
     Dates: start: 20231108, end: 20231121
  52. DIFLUCAN [Concomitant]
     Active Substance: FLUCONAZOLE
     Dosage: 200 MG
     Route: 048
     Dates: start: 20231226, end: 20231229
  53. TAPOCIN [Concomitant]
     Indication: Pneumonia
     Dosage: 400 MG
     Route: 042
     Dates: start: 20230901, end: 20230918
  54. MEGACE F [Concomitant]
     Indication: Decreased appetite
     Dosage: 5 ML, (PRN, SUSP)
     Route: 065
     Dates: start: 20231118, end: 20231125
  55. CEFTRIAXONE [Concomitant]
     Active Substance: CEFTRIAXONE\CEFTRIAXONE SODIUM
     Indication: Prophylaxis
     Dosage: 2 G
     Route: 042
     Dates: start: 20231208, end: 20231211
  56. NOLTEC [Concomitant]
     Indication: Prophylaxis
     Dosage: 10 MG
     Route: 048
     Dates: start: 20231227, end: 20231228

REACTIONS (7)
  - Febrile neutropenia [Recovered/Resolved]
  - Neuropathy peripheral [Recovering/Resolving]
  - Neutropenia [Recovered/Resolved]
  - Thrombocytopenia [Recovered/Resolved]
  - Abdominal pain [Recovered/Resolved]
  - Pruritus [Recovered/Resolved]
  - Pyrexia [Recovered/Resolved]

NARRATIVE: CASE EVENT DATE: 20230908
